FAERS Safety Report 5193809-0 (Version None)
Quarter: 2006Q4

REPORT INFORMATION
  Report Type: 
  Country: None (occurrence: None)
  Receive Date: 20061222
  Receipt Date: 20061212
  Transmission Date: 20070319
  Serious: Yes (Other)
  Sender: FDA-Public Use
  Company Number: 2006153326

PATIENT
  Sex: Female

DRUGS (1)
  1. LIPITOR [Suspect]
     Dates: start: 20010901, end: 20040101

REACTIONS (8)
  - ASTHENIA [None]
  - BLOOD CHOLESTEROL INCREASED [None]
  - COMPRESSION FRACTURE [None]
  - ELECTROMYOGRAM ABNORMAL [None]
  - GAIT DISTURBANCE [None]
  - HYPERREFLEXIA [None]
  - MYOSITIS [None]
  - TREMOR [None]
